FAERS Safety Report 6370939-9 (Version None)
Quarter: 2009Q3

REPORT INFORMATION
  Report Type: 
  Country: None (occurrence: None)
  Receive Date: 20090923
  Receipt Date: 20071009
  Transmission Date: 20100115
  Serious: Yes (Other)
  Sender: FDA-Public Use
  Company Number: US-ASTRAZENECA-2006UW23096

PATIENT
  Age: 681 Month
  Sex: Male
  Weight: 97.5 kg

DRUGS (5)
  1. SEROQUEL [Suspect]
     Indication: BIPOLAR DISORDER
     Route: 048
     Dates: start: 19980801, end: 20040901
  2. SEROQUEL [Suspect]
     Dosage: 100-300 MG (FLUCTUATING)
     Route: 048
     Dates: start: 20010904
  3. LITHOBID [Concomitant]
     Dosage: 300-600 MG TWICE A DAY
     Route: 048
     Dates: start: 19971226
  4. CLONIDINE [Concomitant]
     Dosage: 0.1-0.4 MG (FLUCTUATING)
     Dates: start: 19961226
  5. DEPAKOTE [Concomitant]
     Dosage: 250-500 MG (FLUCTUATING) AT MORNING AND AT EVENING
     Dates: start: 20020128

REACTIONS (2)
  - DIABETES MELLITUS [None]
  - DIABETIC COMA [None]
